FAERS Safety Report 7337320-7 (Version None)
Quarter: 2011Q1

REPORT INFORMATION
  Report Type: 
  Country: None (occurrence: None)
  Receive Date: 20110222
  Receipt Date: 20110110
  Transmission Date: 20110831
  Serious: Yes (Life-Threatening, Hospitalization)
  Sender: FDA-Public Use
  Company Number: LEO-2011-00170

PATIENT
  Age: 41 Year
  Sex: Female

DRUGS (2)
  1. INNOHEP [Suspect]
     Indication: VENOUS THROMBOSIS
     Dosage: 8000 IU (8000 IU,1 IN 1 D), SUBCUTANEOUS
     Route: 058
     Dates: start: 20100831, end: 20110103
  2. INNOHEP [Suspect]
     Indication: VENOUS THROMBOSIS
     Dosage: 8000 IU (8000 IU,1 IN 1 D), SUBCUTANEOUS
     Route: 058
     Dates: start: 20110108

REACTIONS (4)
  - GASTROINTESTINAL HAEMORRHAGE [None]
  - GASTRITIS [None]
  - DUODENITIS [None]
  - ANAEMIA [None]
